FAERS Safety Report 14075173 (Version 2)
Quarter: 2018Q1

REPORT INFORMATION
  Report Type: Report from Study
  Country: US (occurrence: US)
  Receive Date: 20171010
  Receipt Date: 20180113
  Transmission Date: 20180508
  Serious: No
  Sender: FDA-Public Use
  Company Number: PHEH2017US032773

PATIENT
  Sex: Male

DRUGS (2)
  1. COSENTYX [Suspect]
     Active Substance: SECUKINUMAB
     Dosage: 300 MG, QMO
     Route: 058
  2. COSENTYX [Suspect]
     Active Substance: SECUKINUMAB
     Indication: ANKYLOSING SPONDYLITIS
     Dosage: 300 MG (300MG AT WEEKS 0,1,2,3,AND 4. THEN INJECT 300MG SQ ONCE EVERY 4 WEEKS THEREAFTER)
     Route: 058

REACTIONS (3)
  - Rhinorrhoea [Recovered/Resolved]
  - Diarrhoea [Recovering/Resolving]
  - Somnolence [Recovered/Resolved]
